FAERS Safety Report 5166769-6 (Version None)
Quarter: 2006Q4

REPORT INFORMATION
  Report Type: 
  Country: None (occurrence: None)
  Receive Date: 20061129
  Receipt Date: 20061115
  Transmission Date: 20070319
  Serious: Yes (Hospitalization)
  Sender: FDA-Public Use
  Company Number: 229493

PATIENT
  Age: 40 Year
  Sex: Male

DRUGS (6)
  1. MABTHERA (RITUXIMAB) CONC FOR SOLUTION FOR INFUSION [Suspect]
     Indication: RHEUMATOID ARTHRITIS
     Dosage: 500 MG, INTRAVENOUS
     Route: 042
     Dates: start: 20060607, end: 20060621
  2. GLUCOCORTICOID (GLUCOCORTICOID NOS) [Concomitant]
  3. METHOTREXATE [Concomitant]
  4. ACETAMINOPHEN [Concomitant]
  5. CETIRIZINE HCL [Concomitant]
  6. CORTISONE (CORTISONE ACETATE) [Concomitant]

REACTIONS (3)
  - ARTHRITIS [None]
  - ARTHRITIS INFECTIVE [None]
  - TYPE IV HYPERSENSITIVITY REACTION [None]
